FAERS Safety Report 9916516 (Version 3)
Quarter: 2014Q1

REPORT INFORMATION
  Report Type: Spontaneous
  Country: MX (occurrence: MX)
  Receive Date: 20140221
  Receipt Date: 20140319
  Transmission Date: 20141002
  Serious: Yes (Life-Threatening, Disabling, Other)
  Sender: FDA-Public Use
  Company Number: MX-NOVOPROD-400514

PATIENT
  Age: 95 Year
  Sex: Male
  Weight: 90 kg

DRUGS (7)
  1. LEVEMIR FLEXPEN [Suspect]
     Indication: RENAL DISORDER
     Dosage: 27 TO 30 IU PER DAY
     Route: 065
     Dates: start: 20130915
  2. LEVEMIR FLEXPEN [Suspect]
     Dosage: 10 IU PER DAY
     Route: 065
  3. VALSARTAN [Concomitant]
     Dosage: 80 MG, BID (EVERY 12 HOURS, FOR 8 MONTHS)
     Route: 048
  4. TAMSULOSIN [Concomitant]
     Indication: BENIGN PROSTATIC HYPERPLASIA
     Dosage: 0.4 MG, QD
     Route: 065
  5. PENTOXIFYLLINE [Concomitant]
     Dosage: 400 MG, QD (HALF)
     Route: 065
  6. ATORVASTATIN [Concomitant]
     Dosage: UNKNOWN
     Route: 065
  7. CLOPIDOGREL [Concomitant]
     Dosage: 5 MG, QD
     Route: 048

REACTIONS (8)
  - Cerebrovascular accident [Not Recovered/Not Resolved]
  - Cerebrovascular accident [Not Recovered/Not Resolved]
  - Cerebrovascular accident [Not Recovered/Not Resolved]
  - Blindness [Not Recovered/Not Resolved]
  - Pain [Not Recovered/Not Resolved]
  - Fatigue [Not Recovered/Not Resolved]
  - Off label use [Unknown]
  - Blood glucose increased [Not Recovered/Not Resolved]
